FAERS Safety Report 6160417-4 (Version None)
Quarter: 2009Q2

REPORT INFORMATION
  Report Type: 
  Country: None (occurrence: None)
  Receive Date: 20090416
  Receipt Date: 20090331
  Transmission Date: 20091009
  Serious: Yes (Death, Life-Threatening, Hospitalization, Other)
  Sender: FDA-Public Use
  Company Number: 2006-02698

PATIENT
  Age: 57 Year
  Sex: Male
  Weight: 65 kg

DRUGS (6)
  1. VELCADE [Suspect]
     Indication: PERIPHERAL T-CELL LYMPHOMA UNSPECIFIED
     Dosage: 2.63 MG, UNK, INTRAVENOUS
     Route: 042
     Dates: start: 20061006, end: 20061006
  2. ELDISINE [Suspect]
     Indication: PERIPHERAL T-CELL LYMPHOMA UNSPECIFIED
     Dosage: 3.50 MG, UNK, INTRAVENOUS
     Route: 042
     Dates: start: 20061006, end: 20061006
  3. BLEOMYCIN SULFATE [Suspect]
     Indication: PERIPHERAL T-CELL LYMPHOMA UNSPECIFIED
     Dosage: 10.00 MG, UNK, INTRAVENOUS
     Route: 042
     Dates: start: 20061006, end: 20061006
  4. DOXORUBICIN HCL [Suspect]
     Indication: PERIPHERAL T-CELL LYMPHOMA UNSPECIFIED
     Dosage: 131.30 MG, UNK, INTRAVENOUS
     Route: 042
     Dates: start: 20061006, end: 20061006
  5. CYCLOPHOSPHAMIDE [Suspect]
     Indication: PERIPHERAL T-CELL LYMPHOMA UNSPECIFIED
     Dosage: 2100.00 MG, UNK, INTRAVENOUS
     Route: 042
     Dates: start: 20061006, end: 20061006
  6. PREDNISONE TAB [Suspect]
     Indication: PERIPHERAL T-CELL LYMPHOMA UNSPECIFIED
     Dosage: 105.00 MG, UNK, INTRAVENOUS
     Route: 042
     Dates: start: 20061006, end: 20061006

REACTIONS (10)
  - ANAEMIA [None]
  - ARTERIAL HAEMORRHAGE [None]
  - HAEMODIALYSIS [None]
  - LEUKOPENIA [None]
  - MULTI-ORGAN FAILURE [None]
  - NEUTROPENIC INFECTION [None]
  - PULMONARY TOXICITY [None]
  - RENAL FAILURE [None]
  - SHOCK HAEMORRHAGIC [None]
  - THROMBOCYTOPENIA [None]
